FAERS Safety Report 13982062 (Version 3)
Quarter: 2017Q4

REPORT INFORMATION
  Report Type: Spontaneous
  Country: GB (occurrence: GB)
  Receive Date: 20170918
  Receipt Date: 20171101
  Transmission Date: 20180321
  Serious: Yes (Other)
  Sender: FDA-Public Use
  Company Number: GB-NOVOPROD-562942

PATIENT
  Age: 38 Year
  Sex: Female
  Weight: 60 kg

DRUGS (12)
  1. BUSPIRONE HYDROCHLORIDE. [Concomitant]
     Active Substance: BUSPIRONE HYDROCHLORIDE
     Dosage: 1 TAB, BID
     Route: 048
     Dates: start: 20170614, end: 20170629
  2. LANTUS [Concomitant]
     Active Substance: INSULIN GLARGINE
     Dosage: USE AS DIRECTED.
     Dates: start: 20170809
  3. SALBUTAMOL [Concomitant]
     Active Substance: ALBUTEROL
     Dosage: 4 TIMES A DAY.
     Route: 048
     Dates: start: 20090515
  4. CYCLIZINE [Concomitant]
     Active Substance: CYCLIZINE
     Dosage: 50 MG, QD
     Dates: start: 20170606, end: 20170613
  5. METFORMIN [Concomitant]
     Active Substance: METFORMIN HYDROCHLORIDE
     Dosage: 1 TAB, QD
     Route: 048
     Dates: start: 20170712, end: 20170726
  6. SERTRALINE [Concomitant]
     Active Substance: SERTRALINE HYDROCHLORIDE
     Dosage: 1 TAB, QD
     Route: 048
     Dates: start: 20170531, end: 20170614
  7. NOVORAPID [Suspect]
     Active Substance: INSULIN ASPART
     Dosage: UNK
     Route: 058
     Dates: start: 20170822, end: 20170823
  8. GLICLAZIDE [Concomitant]
     Active Substance: GLICLAZIDE
     Dosage: USE AS DIRECTED.
     Dates: start: 20170726
  9. NOVORAPID [Suspect]
     Active Substance: INSULIN ASPART
     Indication: TYPE 1 DIABETES MELLITUS
     Dosage: UNK
     Route: 058
     Dates: start: 20170816, end: 20170817
  10. VENLAFAXINE [Concomitant]
     Active Substance: VENLAFAXINE HYDROCHLORIDE
     Dosage: 1 TAB, QD
     Route: 048
     Dates: start: 20170704, end: 20170718
  11. OMEPRAZOLE. [Concomitant]
     Active Substance: OMEPRAZOLE
     Dosage: 1 TAB, QD
     Route: 048
     Dates: start: 20170718, end: 20170815
  12. QVAR [Concomitant]
     Active Substance: BECLOMETHASONE DIPROPIONATE
     Dosage: 1 TAB, BID
     Route: 055
     Dates: start: 20070912

REACTIONS (6)
  - Feeling abnormal [Unknown]
  - Nausea [Recovering/Resolving]
  - Diarrhoea [Recovered/Resolved with Sequelae]
  - Feeling abnormal [Recovering/Resolving]
  - Hypoglycaemia [Unknown]
  - Headache [Recovering/Resolving]

NARRATIVE: CASE EVENT DATE: 20170816
